FAERS Safety Report 4516527-8 (Version None)
Quarter: 2004Q4

REPORT INFORMATION
  Report Type: 
  Country: None (occurrence: None)
  Receive Date: 20041029
  Receipt Date: 20040709
  Transmission Date: 20050328
  Serious: No
  Sender: FDA-Public Use
  Company Number: 2004-118323-NL

PATIENT
  Age: 30 Year
  Sex: Female
  Weight: 72.6 kg

DRUGS (3)
  1. NUVARING [Suspect]
     Indication: CONTRACEPTION
     Dosage: DF DAILY VAGINAL
     Route: 067
     Dates: start: 20040619
  2. ONE A DAY WEIGHT SMART VITAMIN [Concomitant]
  3. TYLENOL (CAPLET) [Concomitant]

REACTIONS (1)
  - METRORRHAGIA [None]
